FAERS Safety Report 5767871-8 (Version None)
Quarter: 2008Q2

REPORT INFORMATION
  Report Type: 
  Country: None (occurrence: None)
  Receive Date: 20080606
  Receipt Date: 20080603
  Transmission Date: 20081010
  Serious: Yes (Hospitalization)
  Sender: FDA-Public Use
  Company Number: VISP-UK-0801S-0059

PATIENT
  Age: 63 Year
  Sex: Male

DRUGS (13)
  1. VISIPAQUE [Suspect]
     Indication: DRUG USE FOR UNKNOWN INDICATION
     Dosage: 135 ML, SINGLE DOSE, I.A.
     Route: 013
     Dates: start: 20080130, end: 20080130
  2. WARFARIN SODIUM [Concomitant]
  3. OMEPRAZOLE [Concomitant]
  4. SPIRONOLACTONE [Concomitant]
  5. DIGOXIN [Concomitant]
  6. LACTULOSE [Concomitant]
  7. ISOSORBIDE DINITRATE [Concomitant]
  8. ISOSORBIDE MONONITRATE [Concomitant]
  9. BISOPROLOL FUMARATE [Concomitant]
  10. SENNA [Concomitant]
  11. RAMIPRIL [Concomitant]
  12. BUMETANIDE [Concomitant]
  13. INSULIN MIXTARD [Concomitant]

REACTIONS (2)
  - DYSURIA [None]
  - URETHRITIS [None]
